FAERS Safety Report 11759294 (Version 1)
Quarter: 2015Q4

REPORT INFORMATION
  Report Type: Spontaneous
  Country: US (occurrence: US)
  Receive Date: 20151120
  Receipt Date: 20151120
  Transmission Date: 20160304
  Serious: No
  Sender: FDA-Public Use
  Company Number: US-JNJFOC-20151007173

PATIENT
  Age: 70 Year
  Sex: Female

DRUGS (3)
  1. CHOLESTEROL  MEDICATION [Concomitant]
     Active Substance: UNSPECIFIED INGREDIENT
     Indication: BLOOD CHOLESTEROL INCREASED
     Route: 065
  2. WOMENS ROGAINE [Suspect]
     Active Substance: MINOXIDIL
     Route: 061
  3. WOMENS ROGAINE [Suspect]
     Active Substance: MINOXIDIL
     Indication: ALOPECIA
     Route: 061

REACTIONS (4)
  - Hair texture abnormal [Recovered/Resolved]
  - Hair growth abnormal [Recovered/Resolved]
  - Inappropriate schedule of drug administration [Unknown]
  - Alopecia [Unknown]
